FAERS Safety Report 5572956-5 (Version None)
Quarter: 2007Q4

REPORT INFORMATION
  Report Type: 
  Country: None (occurrence: None)
  Receive Date: 20071219
  Receipt Date: 20071219
  Transmission Date: 20080405
  Serious: No
  Sender: FDA-Public Use
  Company Number: None

PATIENT
  Age: 21 Year
  Sex: Male
  Weight: 81.6475 kg

DRUGS (6)
  1. BUSPIRONE HCL [Suspect]
     Dosage: 15MG BID PO
     Route: 048
  2. HALOPERIDOL [Concomitant]
  3. LORAZEPAM [Concomitant]
  4. OLANZAPINE [Concomitant]
  5. IBUPROFEN [Concomitant]
  6. SEROQUEL [Concomitant]

REACTIONS (3)
  - SPEECH DISORDER [None]
  - TONGUE DISORDER [None]
  - TRISMUS [None]
